FAERS Safety Report 8171418-9 (Version None)
Quarter: 2012Q1

REPORT INFORMATION
  Report Type: 
  Country: None (occurrence: None)
  Receive Date: 20120228
  Receipt Date: 20120216
  Transmission Date: 20120608
  Serious: Yes (Hospitalization)
  Sender: FDA-Public Use
  Company Number: GB-MEDIMMUNE-MEDI-0014494

PATIENT
  Sex: Female
  Weight: 10.14 kg

DRUGS (1)
  1. SYNAGIS [Suspect]
     Route: 030
     Dates: start: 20111010, end: 20111206

REACTIONS (4)
  - RESPIRATORY SYNCYTIAL VIRUS INFECTION [None]
  - DRUG INEFFECTIVE [None]
  - RESPIRATORY SYNCYTIAL VIRUS BRONCHIOLITIS [None]
  - MECHANICAL VENTILATION [None]
